FAERS Safety Report 23042134 (Version 2)
Quarter: 2023Q4

REPORT INFORMATION
  Report Type: Spontaneous
  Country: US (occurrence: US)
  Receive Date: 20231008
  Receipt Date: 20231111
  Transmission Date: 20240109
  Serious: No
  Sender: FDA-Public Use
  Company Number: US-GSK-US2023133684

PATIENT
  Age: 62 Year
  Sex: Male
  Weight: 98.9 kg

DRUGS (2)
  1. TRELEGY ELLIPTA [Suspect]
     Active Substance: FLUTICASONE FUROATE\UMECLIDINIUM BROMIDE\VILANTEROL TRIFENATATE
     Indication: Chronic obstructive pulmonary disease
     Dosage: 1 PUFF(S), QD; 200-62.5-25MCG 1 INHALATION INTO THE LUNGS ONCE DAILY
     Route: 055
     Dates: start: 202308
  2. ALBUTEROL SULFATE [Concomitant]
     Active Substance: ALBUTEROL SULFATE
     Indication: Chronic obstructive pulmonary disease
     Dosage: UNK; 2.5 MG/0.5 ML SOLUTION FOR NEBULIZATION

REACTIONS (3)
  - Concussion [Recovered/Resolved]
  - Auditory disorder [Unknown]
  - Fall [Recovered/Resolved]

NARRATIVE: CASE EVENT DATE: 20230828
